FAERS Safety Report 5096801-X (Version None)
Quarter: 2006Q3

REPORT INFORMATION
  Report Type: 
  Country: None (occurrence: None)
  Receive Date: 20060831
  Receipt Date: 20060821
  Transmission Date: 20061208
  Serious: Yes (Other)
  Sender: FDA-Public Use
  Company Number: 2006101812

PATIENT
  Sex: Female

DRUGS (2)
  1. ZOLOFT [Suspect]
     Indication: DRUG USE FOR UNKNOWN INDICATION
  2. TAZAC (NIZATIDINE) [Concomitant]

REACTIONS (2)
  - HEART RATE INCREASED [None]
  - PULMONARY THROMBOSIS [None]
